FAERS Safety Report 20782335 (Version 1)
Quarter: 2022Q2

REPORT INFORMATION
  Report Type: Spontaneous
  Country: IT (occurrence: IT)
  Receive Date: 20220504
  Receipt Date: 20220504
  Transmission Date: 20220721
  Serious: Yes (Other)
  Sender: FDA-Public Use
  Company Number: IT-MYLANLABS-2022M1032343

PATIENT
  Age: 54 Year
  Sex: Female

DRUGS (3)
  1. PACLITAXEL [Suspect]
     Active Substance: PACLITAXEL
     Indication: Anaplastic thyroid cancer
     Dosage: UNK (SHE RECEIVED 4 COURSES OF PACLITAXEL)
     Route: 065
     Dates: start: 201909
  2. CISPLATIN [Suspect]
     Active Substance: CISPLATIN
     Indication: Anaplastic thyroid cancer
     Dosage: UNK
     Route: 065
     Dates: start: 201901
  3. DOXORUBICIN [Suspect]
     Active Substance: DOXORUBICIN
     Indication: Anaplastic thyroid cancer
     Dosage: UNK
     Route: 065
     Dates: start: 201901

REACTIONS (1)
  - Drug ineffective [Unknown]

NARRATIVE: CASE EVENT DATE: 20190101
